FAERS Safety Report 9862872 (Version 1)
Quarter: 2014Q1

REPORT INFORMATION
  Report Type: Spontaneous
  Country: US (occurrence: US)
  Receive Date: 20140203
  Receipt Date: 20140203
  Transmission Date: 20141002
  Serious: Yes (Death)
  Sender: FDA-Public Use
  Company Number: CHPA2014US001434

PATIENT
  Age: 53 Year
  Sex: Female

DRUGS (5)
  1. ACETAMINOPHEN (PARACETAMOL) [Suspect]
     Route: 065
  2. ETHANOL [Suspect]
     Route: 065
  3. FENTANYL [Suspect]
     Route: 065
  4. ZOLPIDEM [Suspect]
     Route: 065
  5. ACETAMINOPHEN W/HYDROCODONE [Suspect]
     Route: 065

REACTIONS (1)
  - Death [Fatal]
